FAERS Safety Report 11856018 (Version 1)
Quarter: 2015Q4

REPORT INFORMATION
  Report Type: Spontaneous
  Country: US (occurrence: None)
  Receive Date: 20151218
  Receipt Date: 20151218
  Transmission Date: 20160305
  Serious: No
  Sender: FDA-Public Use
  Company Number: None

PATIENT
  Age: 63 Week
  Sex: Female
  Weight: 99.79 kg

DRUGS (16)
  1. INVOKANA [Suspect]
     Active Substance: CANAGLIFLOZIN
     Indication: DIABETES MELLITUS MANAGEMENT
     Dosage: GIVEN INTO/UNDER THE SKIN
     Route: 058
     Dates: start: 20150324, end: 20150419
  2. ATORVASTATIN [Concomitant]
     Active Substance: ATORVASTATIN
  3. KLONOPIN [Concomitant]
     Active Substance: CLONAZEPAM
  4. XANAX XR [Concomitant]
     Active Substance: ALPRAZOLAM
  5. AMITRIPTYLINE [Concomitant]
     Active Substance: AMITRIPTYLINE
  6. LEVOTHYROXINE. [Concomitant]
     Active Substance: LEVOTHYROXINE
  7. CALCIUM [Concomitant]
     Active Substance: CALCIUM
  8. HUMALOG [Concomitant]
     Active Substance: INSULIN LISPRO
  9. METFORMIN [Concomitant]
     Active Substance: METFORMIN HYDROCHLORIDE
  10. COENZYME Q10 [Concomitant]
     Active Substance: UBIDECARENONE
  11. MULTIVITAMIN [Suspect]
     Active Substance: VITAMINS
  12. TOUJEO INSULIN [Concomitant]
  13. ASPIRIN. [Concomitant]
     Active Substance: ASPIRIN
  14. VITAMIN B-COMPLEX [Concomitant]
     Active Substance: DEXPANTHENOL\NIACINAMIDE\PYRIDOXINE HYDROCHLORIDE\RIBOFLAVIN 5^-PHOSPHATE SODIUM\THIAMINE HYDROCHLORIDE
  15. VIIBRYD [Concomitant]
     Active Substance: VILAZODONE HYDROCHLORIDE
  16. ABILIFY [Concomitant]
     Active Substance: ARIPIPRAZOLE

REACTIONS (9)
  - Dysgeusia [None]
  - Pollakiuria [None]
  - Dizziness [None]
  - Rash [None]
  - Decreased appetite [None]
  - Thirst [None]
  - Paranoia [None]
  - Asthenia [None]
  - Vaginal infection [None]

NARRATIVE: CASE EVENT DATE: 20150418
